FAERS Safety Report 5207706-5 (Version None)
Quarter: 2006Q4

REPORT INFORMATION
  Report Type: 
  Country: None (occurrence: None)
  Receive Date: 20061030
  Receipt Date: 20060601
  Transmission Date: 20070319
  Serious: No
  Sender: FDA-Public Use
  Company Number: 2006CT000673

PATIENT
  Age: 54 Year
  Sex: Female
  Weight: 98.8842 kg

DRUGS (7)
  1. VENTAVIS [Suspect]
     Indication: PULMONARY HYPERTENSION
     Dosage: 5 UG; 6 TO 9X/DAY; INH
     Route: 055
     Dates: start: 20050607, end: 20060601
  2. PEPCID [Concomitant]
  3. ATENOLOL [Concomitant]
  4. AMOXAPINE [Concomitant]
  5. ATORVASTATIN CALCIUM [Concomitant]
  6. HYDROCHLOROTHIAZIDE [Concomitant]
  7. TRACLEER [Concomitant]

REACTIONS (2)
  - DRUG INEFFECTIVE [None]
  - SOMNOLENCE [None]
